FAERS Safety Report 15608537 (Version 1)
Quarter: 2018Q4

REPORT INFORMATION
  Report Type: Spontaneous
  Country: US (occurrence: US)
  Receive Date: 20181112
  Receipt Date: 20181112
  Transmission Date: 20190205
  Serious: Yes (Other)
  Sender: FDA-Public Use
  Company Number: US-SA-2018SA306327

PATIENT
  Age: 71 Year
  Sex: Female

DRUGS (3)
  1. DUPIXENT [Suspect]
     Active Substance: DUPILUMAB
     Indication: DERMATITIS ATOPIC
     Dosage: 300 MG, QOW
     Route: 058
     Dates: start: 20170723
  2. CELLCEPT [MYCOPHENOLATE MOFETIL] [Concomitant]
  3. GENGRAF [Concomitant]
     Active Substance: CYCLOSPORINE

REACTIONS (5)
  - Abdominal infection [Recovered/Resolved]
  - Memory impairment [Unknown]
  - Thinking abnormal [Unknown]
  - Mental disorder [Unknown]
  - Central nervous system infection [Unknown]
